FAERS Safety Report 4370039-3 (Version None)
Quarter: 2004Q2

REPORT INFORMATION
  Report Type: 
  Country: None (occurrence: None)
  Receive Date: 20040527
  Receipt Date: 20040510
  Transmission Date: 20050107
  Serious: Yes (Death)
  Sender: FDA-Public Use
  Company Number: 2004AP02643

PATIENT
  Age: 81 Year
  Sex: Male

DRUGS (8)
  1. CASODEX [Suspect]
     Indication: PROSTATE CANCER
     Dosage: 80 MG DAILY PO
     Route: 048
     Dates: start: 20030325, end: 20040326
  2. LEUPROLIDE ACETATE [Suspect]
     Indication: PROSTATE CANCER
     Dosage: 3.75 MG Q4WK SQ
     Route: 058
     Dates: start: 20030415
  3. HARNAL [Concomitant]
  4. NERSET [Concomitant]
  5. MAGNESIUM OXIDE [Concomitant]
  6. BISOLVON [Concomitant]
  7. CINAL [Concomitant]
  8. CYANOCOBALAMIN [Concomitant]

REACTIONS (6)
  - ANOREXIA [None]
  - DEPRESSED LEVEL OF CONSCIOUSNESS [None]
  - DRUG INEFFECTIVE [None]
  - HYPERCAPNIA [None]
  - HYPOXIA [None]
  - INTERSTITIAL LUNG DISEASE [None]
